FAERS Safety Report 6003645-0 (Version None)
Quarter: 2008Q4

REPORT INFORMATION
  Report Type: 
  Country: None (occurrence: None)
  Receive Date: 20081216
  Receipt Date: 20081205
  Transmission Date: 20090506
  Serious: Yes (Other)
  Sender: FDA-Public Use
  Company Number: BR-ELI_LILLY_AND_COMPANY-BR200812001744

PATIENT
  Sex: Female
  Weight: 44 kg

DRUGS (5)
  1. FORTEO [Suspect]
     Indication: OSTEOPOROSIS
     Dosage: 20 UG, DAILY (1/D)
     Route: 058
     Dates: start: 20080901
  2. OMEPRAZOLE [Concomitant]
     Indication: DYSPEPSIA
     Dosage: 20 MG, EACH MORNING
     Route: 065
  3. METAMUCIL [Concomitant]
     Indication: CONSTIPATION
     Dosage: UNK, DAILY (1/D)
     Route: 065
  4. ACETAMINOPHEN [Concomitant]
     Indication: PAIN
     Dosage: 750 MG, OTHER
     Route: 065
  5. MELILOTUS OFFICINALIS [Concomitant]
     Indication: PAIN IN EXTREMITY
     Dosage: UNK, DAILY (1/D)
     Route: 065

REACTIONS (1)
  - CHOLELITHIASIS [None]
